FAERS Safety Report 24279590 (Version 2)
Quarter: 2024Q4

REPORT INFORMATION
  Report Type: Report from Study
  Country: US (occurrence: US)
  Receive Date: 20240904
  Receipt Date: 20241130
  Transmission Date: 20250115
  Serious: Yes (Other)
  Sender: ABBVIE
  Company Number: US-ABBVIE-5901003

PATIENT
  Age: 65 Year
  Sex: Female

DRUGS (1)
  1. SKYRIZI [Suspect]
     Active Substance: RISANKIZUMAB-RZAA
     Indication: Psoriasis
     Route: 058
     Dates: start: 20240124

REACTIONS (6)
  - Rotator cuff syndrome [Not Recovered/Not Resolved]
  - Sensory disturbance [Unknown]
  - Cataract [Not Recovered/Not Resolved]
  - Procedural pain [Not Recovered/Not Resolved]
  - Musculoskeletal pain [Unknown]
  - Musculoskeletal disorder [Unknown]

NARRATIVE: CASE EVENT DATE: 20240101
